FAERS Safety Report 18387300 (Version 9)
Quarter: 2023Q1

REPORT INFORMATION
  Report Type: Spontaneous
  Country: PT (occurrence: PT)
  Receive Date: 20201015
  Receipt Date: 20230329
  Transmission Date: 20230417
  Serious: Yes (Hospitalization, Disabling, Other)
  Sender: FDA-Public Use
  Company Number: NVSC2020PT275751

PATIENT
  Age: 87 Year
  Sex: Male

DRUGS (3)
  1. QUETIAPINE FUMARATE [Suspect]
     Active Substance: QUETIAPINE FUMARATE
     Indication: Psychomotor hyperactivity
     Dosage: UNK
     Route: 065
  2. ACYCLOVIR [Suspect]
     Active Substance: ACYCLOVIR
     Indication: Meningoencephalitis herpetic
     Dosage: UNK
     Route: 048
  3. ACYCLOVIR [Suspect]
     Active Substance: ACYCLOVIR
     Indication: Rash vesicular

REACTIONS (7)
  - Dyskinesia [Recovered/Resolved]
  - Acute kidney injury [Recovered/Resolved]
  - Tardive dyskinesia [Recovered/Resolved]
  - Renal impairment [Recovered/Resolved]
  - Overdose [Unknown]
  - Off label use [Unknown]
  - Rash vesicular [Unknown]
